FAERS Safety Report 5209906-7 (Version None)
Quarter: 2006Q4

REPORT INFORMATION
  Report Type: 
  Country: None (occurrence: None)
  Receive Date: 20061130
  Receipt Date: 20060307
  Transmission Date: 20070319
  Serious: Yes (Other)
  Sender: FDA-Public Use
  Company Number: 2006033659

PATIENT
  Sex: Male
  Weight: 90.7194 kg

DRUGS (3)
  1. ZYVOX [Suspect]
     Indication: STAPHYLOCOCCAL INFECTION
     Dosage: 1200 MG (600 MG, 2IN 1 D), INTRAVENOUS
     Route: 042
     Dates: start: 20060215, end: 20060303
  2. VANCOMCYIN (VANCOMYCIN) [Concomitant]
  3. ANTIDEPRESSANTS (ANTIDEPRESSANTS) [Concomitant]

REACTIONS (2)
  - NEUROPATHY PERIPHERAL [None]
  - VISION BLURRED [None]
